FAERS Safety Report 21211775 (Version 2)
Quarter: 2022Q4

REPORT INFORMATION
  Report Type: Spontaneous
  Country: US (occurrence: US)
  Receive Date: 20220815
  Receipt Date: 20221007
  Transmission Date: 20230112
  Serious: No
  Sender: FDA-Public Use
  Company Number: US-JNJFOC-20220803941

PATIENT
  Age: 50 Year
  Sex: Female

DRUGS (1)
  1. PONVORY [Suspect]
     Active Substance: PONESIMOD
     Indication: Multiple sclerosis
     Dosage: :PONVORY FC TABLET 2.00 MG, 3.00 MG, 4.00 MG, 5.00 MG, 6.00 MG, 7.00 MG, 8.00 MG, 9.00 MG, 10.00 MG
     Route: 065

REACTIONS (1)
  - Product packaging quantity issue [Unknown]
